FAERS Safety Report 6834155-6 (Version None)
Quarter: 2010Q3

REPORT INFORMATION
  Report Type: 
  Country: None (occurrence: None)
  Receive Date: 20100712
  Receipt Date: 20070419
  Transmission Date: 20110219
  Serious: No
  Sender: FDA-Public Use
  Company Number: US-PFIZER INC-2007030785

PATIENT
  Sex: Female

DRUGS (9)
  1. CHANTIX [Suspect]
     Indication: SMOKING CESSATION THERAPY
     Dates: start: 20070111
  2. KLONOPIN [Concomitant]
  3. LEXAPRO [Concomitant]
     Indication: DEPRESSION
  4. VITAMINS [Concomitant]
  5. OPHTHALMOLOGICALS [Concomitant]
     Indication: MACULOPATHY
  6. CALTRATE + D [Concomitant]
  7. COENZYME Q10 [Concomitant]
  8. ACETYLSALICYLIC ACID [Concomitant]
  9. VITAMIN B [Concomitant]

REACTIONS (8)
  - CONSTIPATION [None]
  - DEPRESSION [None]
  - DRUG INEFFECTIVE [None]
  - FATIGUE [None]
  - LAZINESS [None]
  - LETHARGY [None]
  - NAUSEA [None]
  - WEIGHT INCREASED [None]
